FAERS Safety Report 5411612-0 (Version None)
Quarter: 2007Q3

REPORT INFORMATION
  Report Type: 
  Country: None (occurrence: None)
  Receive Date: 20070810
  Receipt Date: 20070801
  Transmission Date: 20080115
  Serious: Yes (Other)
  Sender: FDA-Public Use
  Company Number: US-PFIZER INC-2007063826

PATIENT
  Sex: Female
  Weight: 67.1 kg

DRUGS (3)
  1. NORVASC [Suspect]
     Indication: BLOOD PRESSURE INCREASED
     Dosage: DAILY DOSE:2.5MG
  2. CLONIDINE [Concomitant]
  3. NEXIUM [Concomitant]

REACTIONS (3)
  - ANAPHYLACTIC SHOCK [None]
  - FOOD ALLERGY [None]
  - WEIGHT DECREASED [None]
